FAERS Safety Report 24918899 (Version 1)
Quarter: 2025Q1

REPORT INFORMATION
  Report Type: Spontaneous
  Country: US (occurrence: US)
  Receive Date: 20250204
  Receipt Date: 20250204
  Transmission Date: 20250408
  Serious: No
  Sender: Kenvue
  Company Number: US-KENVUE-20250200179

PATIENT
  Sex: Female

DRUGS (2)
  1. WOMENS ROGAINE UNSCENTED [Suspect]
     Active Substance: MINOXIDIL
     Indication: Alopecia
     Dosage: HALF CAP FULL , TWICE A DAY
     Route: 061
     Dates: start: 2023
  2. MENS ROGAINE [Concomitant]
     Active Substance: MINOXIDIL
     Indication: Alopecia
     Dosage: UNK, ONCE A DAY (MEN^S AT NIGHT)
     Route: 061

REACTIONS (2)
  - Inappropriate schedule of product administration [Unknown]
  - Overdose [Unknown]

NARRATIVE: CASE EVENT DATE: 20230101
